FAERS Safety Report 5329668-2 (Version None)
Quarter: 2007Q2

REPORT INFORMATION
  Report Type: 
  Country: None (occurrence: None)
  Receive Date: 20070227
  Receipt Date: 20060317
  Transmission Date: 20071010
  Serious: Yes (Other)
  Sender: FDA-Public Use
  Company Number: 441167

PATIENT
  Age: 16 Year
  Sex: Female

DRUGS (4)
  1. ACCUTANE [Suspect]
     Indication: ACNE
     Dates: start: 20050210, end: 20060301
  2. PREVACID [Concomitant]
  3. PENTASA [Concomitant]
  4. YASMIN [Concomitant]

REACTIONS (3)
  - BACK PAIN [None]
  - COLITIS ULCERATIVE [None]
  - LIVER FUNCTION TEST ABNORMAL [None]
